FAERS Safety Report 12212083 (Version 2)
Quarter: 2016Q2

REPORT INFORMATION
  Report Type: Spontaneous
  Country: GB (occurrence: GB)
  Receive Date: 20160325
  Receipt Date: 20160421
  Transmission Date: 20160815
  Serious: Yes (Other)
  Sender: FDA-Public Use
  Company Number: GB-ELI_LILLY_AND_COMPANY-GB201603007578

PATIENT
  Sex: Female
  Weight: 64 kg

DRUGS (3)
  1. CYMBALTA [Suspect]
     Active Substance: DULOXETINE HYDROCHLORIDE
     Indication: ANXIETY
  2. CYMBALTA [Suspect]
     Active Substance: DULOXETINE HYDROCHLORIDE
     Indication: DEPRESSION
     Dosage: 60 MG, BID
     Route: 048
     Dates: start: 20150320
  3. CYMBALTA [Suspect]
     Active Substance: DULOXETINE HYDROCHLORIDE
     Indication: ANALGESIC THERAPY

REACTIONS (8)
  - Crying [Unknown]
  - Suicidal ideation [Recovering/Resolving]
  - Activities of daily living impaired [Unknown]
  - Paraesthesia [Unknown]
  - Insomnia [Unknown]
  - Nightmare [Unknown]
  - Agoraphobia [Unknown]
  - Drug withdrawal syndrome [Unknown]
